FAERS Safety Report 18182424 (Version 3)
Quarter: 2020Q4

REPORT INFORMATION
  Report Type: Report from Study
  Country: GB (occurrence: GB)
  Receive Date: 20200821
  Receipt Date: 20201006
  Transmission Date: 20210113
  Serious: Yes (Other)
  Sender: FDA-Public Use
  Company Number: NVSC2020GB230869

PATIENT
  Sex: Female

DRUGS (1)
  1. HYRIMOZ [Suspect]
     Active Substance: ADALIMUMAB-ADAZ
     Indication: HIDRADENITIS
     Dosage: 40 MG, QW (AS DIRECTED)
     Route: 065

REACTIONS (4)
  - Injection site pain [Unknown]
  - Suicidal ideation [Unknown]
  - Affective disorder [Unknown]
  - Movement disorder [Unknown]
